FAERS Safety Report 10040083 (Version 2)
Quarter: 2014Q1

REPORT INFORMATION
  Report Type: Spontaneous
  Country: CA (occurrence: CA)
  Receive Date: 20140326
  Receipt Date: 20140326
  Transmission Date: 20141002
  Serious: Yes (Hospitalization, Other)
  Sender: FDA-Public Use
  Company Number: CA-AMGEN-CANSP2013070765

PATIENT
  Age: 61 Year
  Sex: Female

DRUGS (9)
  1. ENBREL [Suspect]
     Indication: RHEUMATOID ARTHRITIS
     Dosage: 50 MG, UNK
     Route: 065
     Dates: start: 20130715
  2. METOPROLOL [Concomitant]
     Dosage: UNK
  3. NORVASC [Concomitant]
     Dosage: UNK
  4. QUININE [Concomitant]
     Dosage: UNK
  5. VITAMIN E                          /00110501/ [Concomitant]
     Dosage: UNK
  6. VITAMIN B12                        /00056201/ [Concomitant]
     Dosage: 1000 MG, UNK
  7. VITAMIN D                          /00107901/ [Concomitant]
     Dosage: UNK
  8. NAPROXEN [Concomitant]
     Dosage: UNK
  9. PANTOPRAZOLE [Concomitant]
     Dosage: 40 MG, BID

REACTIONS (6)
  - Tracheal stenosis [Recovering/Resolving]
  - Dyspnoea [Recovering/Resolving]
  - Productive cough [Recovering/Resolving]
  - Adverse event [Recovering/Resolving]
  - Nasopharyngitis [Recovering/Resolving]
  - Viral infection [Recovering/Resolving]
